FAERS Safety Report 18076933 (Version 1)
Quarter: 2020Q3

REPORT INFORMATION
  Report Type: Spontaneous
  Country: CH (occurrence: CH)
  Receive Date: 20200728
  Receipt Date: 20200728
  Transmission Date: 20201103
  Serious: Yes (Other)
  Sender: FDA-Public Use
  Company Number: CH-ABBVIE-20K-151-3499584-00

PATIENT
  Age: 20 Year

DRUGS (1)
  1. RINVOQ [Suspect]
     Active Substance: UPADACITINIB
     Indication: ECZEMA
     Route: 048

REACTIONS (7)
  - Muscle injury [Unknown]
  - Myalgia [Recovered/Resolved]
  - Gait disturbance [Unknown]
  - Off label use [Recovered/Resolved]
  - Muscle atrophy [Unknown]
  - Blood creatine phosphokinase increased [Unknown]
  - Therapeutic product effect decreased [Unknown]
